FAERS Safety Report 6314226-3 (Version None)
Quarter: 2009Q3

REPORT INFORMATION
  Report Type: 
  Country: None (occurrence: None)
  Receive Date: 20090817
  Receipt Date: 20090804
  Transmission Date: 20100115
  Serious: Yes (Other)
  Sender: FDA-Public Use
  Company Number: 2009AP002990

PATIENT
  Age: 62 Year
  Sex: Male

DRUGS (18)
  1. ZOLPIDEM TARTRATE [Suspect]
     Indication: SLEEP DISORDER
     Dosage: 10 MG; QD; PO
     Route: 048
     Dates: start: 20080916
  2. TRAMADOL [Concomitant]
  3. PARACETAMOL [Concomitant]
  4. ASPIRIN [Concomitant]
  5. MAGNESIUM OXIDE [Concomitant]
  6. FLUTIICASONE PROPIONATE [Concomitant]
  7. VARDENAFIL [Concomitant]
  8. SOTALOL HYDROCHLORIDE [Concomitant]
  9. POTASSIUM CHLORIDE [Concomitant]
  10. CARVEDILOL [Concomitant]
  11. CLOPIDOGREL BISULFATE [Concomitant]
  12. FUROSEMIDE [Concomitant]
  13. LISINOPRIL [Concomitant]
  14. PARACETAMOL [Concomitant]
  15. OXYCODONE [Concomitant]
  16. BACLOFEN [Concomitant]
  17. WARFARIN [Concomitant]
  18. POTASSIUM CHLORIDE [Concomitant]

REACTIONS (4)
  - ACTIVATED PARTIAL THROMBOPLASTIN TIME PROLONGED [None]
  - AMNESIA [None]
  - BLADDER NECK OBSTRUCTION [None]
  - PROTHROMBIN TIME PROLONGED [None]
